FAERS Safety Report 24258999 (Version 2)
Quarter: 2024Q3

REPORT INFORMATION
  Report Type: Spontaneous
  Country: US (occurrence: US)
  Receive Date: 20240828
  Receipt Date: 20240930
  Transmission Date: 20241016
  Serious: No
  Sender: PFIZER
  Company Number: US-PFIZER INC-PV202300122052

PATIENT
  Age: 83 Year
  Sex: Female

DRUGS (5)
  1. IBRANCE [Suspect]
     Active Substance: PALBOCICLIB
     Indication: Neoplasm malignant
     Dosage: 125 MG, CYCLIC (TAKE AT THE SAME TIME DAILY ON DAYS 1-21 OF EACH 28 DAYS CYCLE)
     Route: 048
  2. IBRANCE [Suspect]
     Active Substance: PALBOCICLIB
     Dosage: 75 MG, CYCLIC (TAKE AT THE SAME TIME DAILY ON DAYS 1 -21 OF EACH 28 DAY CYCLE, SWALLOW WHOLE)
     Route: 048
  3. LETROZOLE [Concomitant]
     Active Substance: LETROZOLE
     Indication: Neoplasm malignant
     Dosage: UNK
  4. LEVOTHYROXINE [Concomitant]
     Active Substance: LEVOTHYROXINE\LEVOTHYROXINE SODIUM
     Indication: Thyroid disorder
     Dosage: UNK
  5. HYDROCHLOROTHIAZIDE [Concomitant]
     Active Substance: HYDROCHLOROTHIAZIDE
     Dosage: UNK

REACTIONS (7)
  - Skin exfoliation [Unknown]
  - Swelling [Unknown]
  - Pruritus [Unknown]
  - Dry skin [Unknown]
  - Oropharyngeal discomfort [Unknown]
  - Product dispensing issue [Unknown]
  - Product dose omission issue [Unknown]
